FAERS Safety Report 5608394-6 (Version None)
Quarter: 2008Q1

REPORT INFORMATION
  Report Type: 
  Country: None (occurrence: None)
  Receive Date: 20080125
  Receipt Date: 20080111
  Transmission Date: 20080703
  Serious: Yes (Death, Life-Threatening)
  Sender: FDA-Public Use
  Company Number: 2007P1000701

PATIENT
  Age: 0 Year
  Sex: Female

DRUGS (2)
  1. BUSULFAN (BUSULFAN) [Suspect]
     Indication: STEM CELL TRANSPLANT
     Dosage: 4.4 MG; QID; IV
     Route: 042
     Dates: start: 20070810, end: 20070814
  2. THIOTEPA [Concomitant]

REACTIONS (6)
  - GALLBLADDER ENLARGEMENT [None]
  - HEPATIC FAILURE [None]
  - HYPOPNOEA [None]
  - PULMONARY HAEMORRHAGE [None]
  - RENAL FAILURE [None]
  - VENOOCCLUSIVE LIVER DISEASE [None]
